FAERS Safety Report 6934513-5 (Version None)
Quarter: 2010Q3

REPORT INFORMATION
  Report Type: 
  Country: None (occurrence: None)
  Receive Date: 20100820
  Receipt Date: 20100810
  Transmission Date: 20110219
  Serious: Yes (Congenital Anomaly)
  Sender: FDA-Public Use
  Company Number: IE-WATSON-2010-10813

PATIENT

DRUGS (1)
  1. CRINONE (WATSON LABORATORIES) [Suspect]
     Indication: PRODUCT USED FOR UNKNOWN INDICATION
     Dosage: UNK
     Route: 064

REACTIONS (3)
  - EXOMPHALOS [None]
  - MATERNAL DRUGS AFFECTING FOETUS [None]
  - TRISOMY 21 [None]
